FAERS Safety Report 7574593-X (Version None)
Quarter: 2011Q2

REPORT INFORMATION
  Report Type: 
  Country: None (occurrence: None)
  Receive Date: 20110627
  Receipt Date: 20091122
  Transmission Date: 20111010
  Serious: Yes (Death, Other)
  Sender: FDA-Public Use
  Company Number: US-BAYER-200940590NA

PATIENT
  Age: 74 Year
  Sex: Male
  Weight: 99.773 kg

DRUGS (28)
  1. FUROSEMIDE [Concomitant]
     Dosage: 40 MG, QD
     Route: 048
  2. POTASSIUM [Concomitant]
     Dosage: 20 MEQ, QD
     Route: 048
  3. FORANE [Concomitant]
     Dosage: UNK
     Dates: start: 20040630
  4. DOPAMINE HCL [Concomitant]
     Dosage: UNK
     Dates: start: 20040630, end: 20040702
  5. DILTIAZEM [Concomitant]
     Dosage: 15 MG, UNK
  6. PANCURONIUM [Concomitant]
     Dosage: UNK
     Dates: start: 20040630
  7. VERSED [Concomitant]
     Dosage: UNK
     Dates: start: 20040630
  8. SODIUM BICARBONATE [Concomitant]
     Dosage: 1 AMPULE, UNK
     Dates: start: 20040630
  9. MORPHINE [Concomitant]
     Dosage: 8 MG, UNK
     Route: 030
     Dates: start: 20040629
  10. MANNITOL [Concomitant]
     Dosage: 500 ML, UNK
     Dates: start: 20040630
  11. PAPAVERINE [Concomitant]
     Dosage: 60 MCG, UNK
     Dates: start: 20040630
  12. TRASYLOL [Suspect]
     Indication: CORONARY REVASCULARISATION
     Dosage: TEST DOSE
     Route: 042
     Dates: start: 20040630
  13. TRASYLOL [Suspect]
     Indication: MITRAL VALVE REPLACEMENT
     Dosage: 200 ML BOLUS
     Route: 042
     Dates: start: 20040630, end: 20040701
  14. SPIRONOLACTONE [Concomitant]
     Dosage: 12.5 MG, QD
  15. ATENOLOL [Concomitant]
     Dosage: 50 MG, QD
     Route: 048
  16. MAGNESIUM SULFATE [Concomitant]
     Dosage: 4 G, UNK
     Dates: start: 20040630
  17. ANCEF [Concomitant]
     Dosage: 1 G, UNK
     Dates: start: 20040630
  18. TRASYLOL [Suspect]
     Indication: PERICARDIAL OPERATION
     Dosage: 100 ML (PRIME)
     Route: 042
     Dates: start: 20040630, end: 20040701
  19. TRASYLOL [Suspect]
     Dosage: 10,000KIU X 4
     Route: 042
     Dates: start: 20040630
  20. LORAZEPAM [Concomitant]
     Dosage: 2 MG, UNK
     Route: 048
     Dates: start: 20040630
  21. HEPARIN [Concomitant]
     Dosage: UNK
     Dates: start: 20040630
  22. ACETYLSALICYLIC ACID SRT [Concomitant]
     Dosage: 81 MG, UNK
     Route: 048
  23. LISINOPRIL [Concomitant]
     Dosage: 20 MG, QD
     Route: 048
  24. PROTAMINE SULFATE [Concomitant]
     Dosage: UNK
     Dates: start: 20040630
  25. CRESTOR [Concomitant]
     Dosage: 10 MG, QD
     Route: 048
  26. PROPOFOL [Concomitant]
     Dosage: UNK
     Dates: start: 20040630
  27. FENTANYL [Concomitant]
     Dosage: UNK
     Dates: start: 20040630
  28. INSULIN [Concomitant]
     Dosage: 10 U, UNK
     Dates: start: 20040630

REACTIONS (13)
  - MULTI-ORGAN FAILURE [None]
  - RENAL IMPAIRMENT [None]
  - PAIN [None]
  - DEATH [None]
  - ANXIETY [None]
  - STRESS [None]
  - RENAL FAILURE [None]
  - ANHEDONIA [None]
  - INJURY [None]
  - RENAL INJURY [None]
  - EMOTIONAL DISTRESS [None]
  - UNEVALUABLE EVENT [None]
  - FEAR [None]
